FAERS Safety Report 6022837-8 (Version None)
Quarter: 2008Q4

REPORT INFORMATION
  Report Type: 
  Country: None (occurrence: None)
  Receive Date: 20081230
  Receipt Date: 20080227
  Transmission Date: 20090506
  Serious: No
  Sender: FDA-Public Use
  Company Number: US-ABBOTT-08P-163-0440023-00

PATIENT
  Sex: Female
  Weight: 89.438 kg

DRUGS (1)
  1. OMNICEF CAPSULES [Suspect]
     Indication: DRUG USE FOR UNKNOWN INDICATION
     Route: 048
     Dates: start: 20050101, end: 20050101

REACTIONS (1)
  - RASH PRURITIC [None]
